FAERS Safety Report 16886006 (Version 2)
Quarter: 2019Q4

REPORT INFORMATION
  Report Type: Spontaneous
  Country: DE (occurrence: DE)
  Receive Date: 20191004
  Receipt Date: 20191017
  Transmission Date: 20200122
  Serious: Yes (Hospitalization)
  Sender: FDA-Public Use
  Company Number: DE-ASTRAZENECA-2019SF39091

PATIENT
  Age: 60 Year
  Sex: Female
  Weight: 52 kg

DRUGS (8)
  1. PANTOPRAZOL [Concomitant]
     Active Substance: PANTOPRAZOLE SODIUM
     Dosage: 40 (1-0-0)
  2. SINGULAIR [Concomitant]
     Active Substance: MONTELUKAST SODIUM
     Dosage: 10 (0-0-1)
  3. BENRALIZUMAB. [Suspect]
     Active Substance: BENRALIZUMAB
     Dosage: EVERY TWO MONTHS
     Route: 058
     Dates: start: 201909
  4. SYMBICORT [Suspect]
     Active Substance: BUDESONIDE\FORMOTEROL FUMARATE DIHYDRATE
     Dosage: 320/9 UG, TWO PUFFS TWO TIMES A DAY
     Route: 055
  5. PREDNI [Concomitant]
     Active Substance: PREDNISONE ACETATE
     Dosage: (20-0-20) SINCE 10 DAYS
  6. EUPHYLONG [Concomitant]
     Active Substance: THEOPHYLLINE ANHYDROUS
     Dosage: 375 (1-0-1)
  7. BEROTEC DA [Concomitant]
     Dosage: IF REQUIRED
  8. ESCITALOPRAM [Concomitant]
     Active Substance: ESCITALOPRAM OXALATE
     Dosage: 10 (0-0-1)

REACTIONS (3)
  - Infection [Unknown]
  - Dyspnoea [Unknown]
  - Pulmonary function test abnormal [Not Recovered/Not Resolved]
